FAERS Safety Report 10445425 (Version 1)
Quarter: 2014Q3

REPORT INFORMATION
  Report Type: Spontaneous
  Country: US (occurrence: US)
  Receive Date: 20140908
  Receipt Date: 20140908
  Transmission Date: 20150326
  Serious: No
  Sender: FDA-Public Use
  Company Number: US-BRISTOL-MYERS SQUIBB COMPANY-19453141

PATIENT
  Sex: Female

DRUGS (2)
  1. ABILIFY [Suspect]
     Active Substance: ARIPIPRAZOLE
  2. STRATTERA [Interacting]
     Active Substance: ATOMOXETINE HYDROCHLORIDE

REACTIONS (2)
  - Drug interaction [Unknown]
  - Blood glucose increased [Unknown]
